FAERS Safety Report 5772255-2 (Version None)
Quarter: 2008Q2

REPORT INFORMATION
  Report Type: 
  Country: None (occurrence: None)
  Receive Date: 20080613
  Receipt Date: 20080602
  Transmission Date: 20081010
  Serious: Yes (Other)
  Sender: FDA-Public Use
  Company Number: PHHY2008BR09835

PATIENT
  Age: 83 Year
  Sex: Male
  Weight: 78 kg

DRUGS (4)
  1. EXELON [Suspect]
     Indication: DEMENTIA
     Dosage: HALF ADHESIVE OF 9 MG
     Route: 062
     Dates: start: 20080516
  2. EXELON [Suspect]
     Dosage: ONE ADHESIVE OF 9 MG
     Route: 062
     Dates: end: 20080530
  3. ALCALION [Concomitant]
  4. PAMELOR [Concomitant]
     Dosage: 10 MG PER DAY

REACTIONS (2)
  - CONFUSIONAL STATE [None]
  - PARAMNESIA [None]
